FAERS Safety Report 8601667-4 (Version None)
Quarter: 2012Q3

REPORT INFORMATION
  Report Type: 
  Country: None (occurrence: None)
  Receive Date: 20120806
  Receipt Date: 20120806
  Transmission Date: 20120928
  Serious: Yes (Other)
  Sender: FDA-Public Use
  Company Number: None

PATIENT
  Sex: Female
  Weight: 58.9676 kg

DRUGS (1)
  1. PHENAZOPYRIDINE HCL TAB [Suspect]
     Indication: BACK PAIN
     Dosage: 100 MG 1 3X DAILY
     Dates: start: 20120719

REACTIONS (3)
  - URTICARIA [None]
  - PRURITUS [None]
  - ERYTHEMA [None]
